FAERS Safety Report 24274321 (Version 2)
Quarter: 2024Q4

REPORT INFORMATION
  Report Type: Spontaneous
  Country: JP (occurrence: JP)
  Receive Date: 20240902
  Receipt Date: 20241010
  Transmission Date: 20250114
  Serious: Yes (Other)
  Sender: MERCK
  Company Number: JP-MSD-2408JPN003813JAA

PATIENT
  Age: 83 Year
  Sex: Male

DRUGS (2)
  1. KEYTRUDA [Suspect]
     Active Substance: PEMBROLIZUMAB
     Indication: Renal cell carcinoma
     Dosage: UNK
     Route: 041
  2. LENVATINIB MESYLATE [Suspect]
     Active Substance: LENVATINIB MESYLATE
     Indication: Renal cell carcinoma
     Dosage: UNK
     Route: 048
     Dates: start: 20240612

REACTIONS (1)
  - Immune-mediated renal disorder [Recovering/Resolving]

NARRATIVE: CASE EVENT DATE: 20240710
